FAERS Safety Report 12156469 (Version 1)
Quarter: 2016Q1

REPORT INFORMATION
  Report Type: Report from Study
  Country: TW (occurrence: TW)
  Receive Date: 20160307
  Receipt Date: 20160307
  Transmission Date: 20160526
  Serious: Yes (Other)
  Sender: FDA-Public Use
  Company Number: TW-JNJFOC-20160223125

PATIENT
  Age: 69 Year
  Sex: Male
  Weight: 72 kg

DRUGS (1)
  1. STELARA [Suspect]
     Active Substance: USTEKINUMAB
     Indication: PSORIASIS
     Route: 058
     Dates: start: 20130618

REACTIONS (1)
  - Mycobacterium tuberculosis complex test positive [Unknown]

NARRATIVE: CASE EVENT DATE: 20130710
